FAERS Safety Report 25824954 (Version 3)
Quarter: 2025Q4

REPORT INFORMATION
  Report Type: Report from Study
  Country: JP (occurrence: JP)
  Receive Date: 20250919
  Receipt Date: 20251223
  Transmission Date: 20260117
  Serious: Yes (Hospitalization)
  Sender: EISAI
  Company Number: JP-Eisai-EC-2025-196834

PATIENT
  Age: 74 Year
  Sex: Female
  Weight: 64.3 kg

DRUGS (3)
  1. LEQEMBI [Suspect]
     Active Substance: LECANEMAB-IRMB
     Indication: Cognitive disorder
     Route: 042
     Dates: start: 20250627, end: 20250808
  2. LEQEMBI [Suspect]
     Active Substance: LECANEMAB-IRMB
     Route: 042
     Dates: start: 20250822, end: 20250822
  3. LEQEMBI [Suspect]
     Active Substance: LECANEMAB-IRMB
     Route: 042
     Dates: start: 20250905, end: 20250905

REACTIONS (1)
  - Amyloid related imaging abnormality-oedema/effusion [Recovered/Resolved]

NARRATIVE: CASE EVENT DATE: 20250905
